FAERS Safety Report 20613346 (Version 2)
Quarter: 2023Q4

REPORT INFORMATION
  Report Type: Spontaneous
  Country: US (occurrence: US)
  Receive Date: 20220318
  Receipt Date: 20231129
  Transmission Date: 20240110
  Serious: No
  Sender: FDA-Public Use
  Company Number: US-SEPTODONT-2021006678

PATIENT
  Age: 40 Year
  Sex: Male

DRUGS (2)
  1. LIGNOSPAN STANDARD [Suspect]
     Active Substance: EPINEPHRINE BITARTRATE\LIDOCAINE HYDROCHLORIDE
     Indication: Dental local anaesthesia
     Dosage: 5 INJECTIONS OF 5 CARPULES
     Route: 004
     Dates: start: 20211221, end: 20211221
  2. BENZOCAINE [Concomitant]
     Active Substance: BENZOCAINE
     Indication: Dental local anaesthesia
     Route: 004
     Dates: start: 20211221, end: 20211221

REACTIONS (1)
  - Drug ineffective [Unknown]

NARRATIVE: CASE EVENT DATE: 20211221
